FAERS Safety Report 24971338 (Version 1)
Quarter: 2025Q1

REPORT INFORMATION
  Report Type: Spontaneous
  Country: US (occurrence: None)
  Receive Date: 20250213
  Receipt Date: 20250213
  Transmission Date: 20250408
  Serious: Yes (Other)
  Sender: FDA-CTU
  Company Number: None

PATIENT
  Age: 60 Year
  Sex: Female
  Weight: 66.5 kg

DRUGS (2)
  1. CEFTRIAXONE [Suspect]
     Active Substance: CEFTRIAXONE
     Indication: Bacteraemia
     Dosage: FREQUENCY : DAILY;?
     Route: 042
     Dates: start: 20250212
  2. CEFTRIAXONE [Suspect]
     Active Substance: CEFTRIAXONE
     Indication: Pyelonephritis

REACTIONS (6)
  - Abdominal pain lower [None]
  - Micturition urgency [None]
  - Type I hypersensitivity [None]
  - Drug hypersensitivity [None]
  - Diarrhoea [None]
  - Vision blurred [None]

NARRATIVE: CASE EVENT DATE: 20250212
